FAERS Safety Report 13534933 (Version 1)
Quarter: 2017Q2

REPORT INFORMATION
  Report Type: Spontaneous
  Country: US (occurrence: US)
  Receive Date: 20170511
  Receipt Date: 20170511
  Transmission Date: 20170830
  Serious: Yes (Death, Hospitalization, Other)
  Sender: FDA-Public Use
  Company Number: US-TEVA-767006USA

PATIENT
  Age: 70 Year
  Sex: Male
  Weight: 89.8 kg

DRUGS (31)
  1. PULMICORT TURBUHALER [Concomitant]
     Active Substance: BUDESONIDE
  2. MIRAPEX [Concomitant]
     Active Substance: PRAMIPEXOLE DIHYDROCHLORIDE
  3. VENTOLIN HFA [Concomitant]
     Active Substance: ALBUTEROL SULFATE
  4. CYMBALTA [Concomitant]
     Active Substance: DULOXETINE HYDROCHLORIDE
  5. NEURONTIN [Concomitant]
     Active Substance: GABAPENTIN
  6. SYNTHROID [Concomitant]
     Active Substance: LEVOTHYROXINE SODIUM
  7. GLYCOLAX [Concomitant]
     Active Substance: POLYETHYLENE GLYCOL 3350
  8. HEPSERA [Concomitant]
     Active Substance: ADEFOVIR DIPIVOXIL
  9. JAKAFI [Concomitant]
     Active Substance: RUXOLITINIB
     Indication: POLYCYTHAEMIA VERA
     Dosage: 20 MILLIGRAM DAILY;
     Route: 048
     Dates: start: 20170123
  10. ASPIRIN. [Concomitant]
     Active Substance: ASPIRIN
  11. NEXIUM [Concomitant]
     Active Substance: ESOMEPRAZOLE MAGNESIUM
  12. XALATAN [Concomitant]
     Active Substance: LATANOPROST
  13. SILVADENE [Concomitant]
     Active Substance: SILVER SULFADIAZINE
  14. ADVAIR HFA [Concomitant]
     Active Substance: FLUTICASONE PROPIONATE\SALMETEROL XINAFOATE
     Dosage: 100/50 MCG
  15. LIORESAL [Concomitant]
     Active Substance: BACLOFEN
  16. AVODART [Concomitant]
     Active Substance: DUTASTERIDE
  17. VITAMIN E [Concomitant]
     Active Substance: .ALPHA.-TOCOPHEROL
  18. BROVANA [Concomitant]
     Active Substance: ARFORMOTEROL TARTRATE
  19. DIAMOX SEQUELS [Suspect]
     Active Substance: ACETAZOLAMIDE
     Indication: GLAUCOMA
     Route: 065
     Dates: end: 20170208
  20. VITAMIN D2 [Concomitant]
     Active Substance: ERGOCALCIFEROL
  21. FLOMAX [Concomitant]
     Active Substance: TAMSULOSIN HYDROCHLORIDE
  22. KLOR-CON [Concomitant]
     Active Substance: POTASSIUM CHLORIDE
  23. AZOPT [Concomitant]
     Active Substance: BRINZOLAMIDE
  24. AGRYLIN [Concomitant]
     Active Substance: ANAGRELIDE HYDROCHLORIDE
  25. MULTIVITAMIN [Concomitant]
     Active Substance: VITAMINS
  26. PILOCARPINE. [Concomitant]
     Active Substance: PILOCARPINE
  27. COMBIGAN [Concomitant]
     Active Substance: BRIMONIDINE TARTRATE\TIMOLOL MALEATE
  28. LUMIGAN [Concomitant]
     Active Substance: BIMATOPROST
  29. LASIX [Concomitant]
     Active Substance: FUROSEMIDE
  30. TYLENOL [Concomitant]
     Active Substance: ACETAMINOPHEN
  31. EFUDEX [Concomitant]
     Active Substance: FLUOROURACIL
     Dates: start: 20170121

REACTIONS (2)
  - Asthenia [Not Recovered/Not Resolved]
  - Metabolic encephalopathy [Unknown]

NARRATIVE: CASE EVENT DATE: 20170208
